FAERS Safety Report 25509948 (Version 1)
Quarter: 2025Q3

REPORT INFORMATION
  Report Type: Spontaneous
  Country: US (occurrence: US)
  Receive Date: 20250703
  Receipt Date: 20250703
  Transmission Date: 20251021
  Serious: No
  Sender: RADIUS PHARM
  Company Number: US-RADIUS HEALTH INC.-2024US005699

PATIENT
  Age: 67 Year
  Sex: Female

DRUGS (2)
  1. TYMLOS [Suspect]
     Active Substance: ABALOPARATIDE
     Indication: Senile osteoporosis
     Route: 058
     Dates: start: 20240717
  2. TYMLOS [Suspect]
     Active Substance: ABALOPARATIDE
     Route: 058
     Dates: start: 20240719

REACTIONS (26)
  - Arthralgia [Unknown]
  - Injection site reaction [Unknown]
  - Heart rate increased [Unknown]
  - Hyperhidrosis [Unknown]
  - Feeling abnormal [Unknown]
  - Fatigue [Unknown]
  - Vision blurred [Not Recovered/Not Resolved]
  - Hot flush [Not Recovered/Not Resolved]
  - Paraesthesia [Not Recovered/Not Resolved]
  - Fluid retention [Not Recovered/Not Resolved]
  - Wrong technique in product usage process [Unknown]
  - Abdominal discomfort [Unknown]
  - Palpitations [Unknown]
  - Dizziness [Unknown]
  - Nausea [Unknown]
  - Headache [Recovered/Resolved]
  - Injection site haemorrhage [Unknown]
  - Product quality issue [Unknown]
  - Injection site pruritus [Not Recovered/Not Resolved]
  - Blood pressure decreased [Not Recovered/Not Resolved]
  - Injection site discomfort [Unknown]
  - Injection site erythema [Unknown]
  - Abdominal distension [Not Recovered/Not Resolved]
  - Brain fog [Unknown]
  - Sleep disorder [Unknown]
  - Abdominal pain upper [Unknown]

NARRATIVE: CASE EVENT DATE: 20240719
